FAERS Safety Report 19172921 (Version 1)
Quarter: 2021Q2

REPORT INFORMATION
  Report Type: Spontaneous
  Country: US (occurrence: US)
  Receive Date: 20210422
  Receipt Date: 20210422
  Transmission Date: 20210717
  Serious: No
  Sender: FDA-Public Use
  Company Number: None

PATIENT
  Age: 31 Year
  Sex: Female
  Weight: 123.75 kg

DRUGS (14)
  1. PEPCID [Concomitant]
     Active Substance: FAMOTIDINE
  2. BLUE BIOTICS PROBIOTIC [Concomitant]
  3. VITAMIN C [Concomitant]
     Active Substance: ASCORBIC ACID
  4. MITO?Q [Concomitant]
  5. VITAMIN D3 [Concomitant]
     Active Substance: CHOLECALCIFEROL
  6. VITAMIN E [Concomitant]
     Active Substance: .ALPHA.-TOCOPHEROL
  7. CARAFATE [Concomitant]
     Active Substance: SUCRALFATE
  8. CELEXA [Concomitant]
     Active Substance: CITALOPRAM HYDROBROMIDE
  9. VITAMIN B12 [Concomitant]
     Active Substance: CYANOCOBALAMIN
  10. CRANBERRY. [Concomitant]
     Active Substance: CRANBERRY
  11. D?MANNOSE [Concomitant]
  12. XARELTO [Suspect]
     Active Substance: RIVAROXABAN
     Indication: DEEP VEIN THROMBOSIS
     Dosage: ?          QUANTITY:28 TABLET(S);?
     Route: 048
     Dates: start: 20210419
  13. SKIN AND NAIL VITAMINS [Concomitant]
  14. LYSINE [Concomitant]
     Active Substance: LYSINE

REACTIONS (1)
  - Dizziness [None]

NARRATIVE: CASE EVENT DATE: 20210422
